FAERS Safety Report 9168967 (Version 1)
Quarter: 2013Q1

REPORT INFORMATION
  Report Type: Spontaneous
  Country: US (occurrence: None)
  Receive Date: 20130314
  Receipt Date: 20130314
  Transmission Date: 20140127
  Serious: Yes (Hospitalization)
  Sender: FDA-Public Use
  Company Number: None

PATIENT
  Age: 96 Year
  Sex: Male
  Weight: 69.7 kg

DRUGS (1)
  1. IRON SUCROSE [Suspect]
     Dosage: 250 MG  ONCE IV
     Route: 042
     Dates: start: 20121011, end: 20121011

REACTIONS (3)
  - Nausea [None]
  - Vomiting [None]
  - Presyncope [None]
